FAERS Safety Report 5993355-8 (Version None)
Quarter: 2008Q4

REPORT INFORMATION
  Report Type: 
  Country: None (occurrence: None)
  Receive Date: 20081212
  Receipt Date: 20081208
  Transmission Date: 20090506
  Serious: Yes (Hospitalization)
  Sender: FDA-Public Use
  Company Number: FR-BRISTOL-MYERS SQUIBB COMPANY-14437131

PATIENT
  Age: 7 Year
  Sex: Female

DRUGS (2)
  1. CORGARD [Suspect]
     Indication: VENTRICULAR TACHYCARDIA
     Dosage: 1 DOSAGE FORM= 20 MG IN THE MORNING AND 35 MG IN THE EVENING.
     Route: 048
     Dates: start: 20060101
  2. PREVISCAN [Concomitant]
     Route: 048

REACTIONS (5)
  - BRADYCARDIA [None]
  - HYPERHIDROSIS [None]
  - HYPOGLYCAEMIC COMA [None]
  - PALLOR [None]
  - PERIPHERAL COLDNESS [None]
